FAERS Safety Report 23876319 (Version 2)
Quarter: 2024Q4

REPORT INFORMATION
  Report Type: Spontaneous
  Country: PT (occurrence: PT)
  Receive Date: 20240520
  Receipt Date: 20241127
  Transmission Date: 20250114
  Serious: No
  Sender: ABBVIE
  Company Number: PT-ABBVIE-5765087

PATIENT

DRUGS (1)
  1. OZURDEX [Suspect]
     Active Substance: DEXAMETHASONE
     Indication: Product used for unknown indication
     Dosage: TIME INTERVAL: AS NECESSARY
     Route: 050

REACTIONS (1)
  - No adverse event [Unknown]
